FAERS Safety Report 5567864-X (Version None)
Quarter: 2007Q4

REPORT INFORMATION
  Report Type: 
  Country: None (occurrence: None)
  Receive Date: 20071220
  Receipt Date: 20071211
  Transmission Date: 20080405
  Serious: Yes (Other)
  Sender: FDA-Public Use
  Company Number: FR-ELI_LILLY_AND_COMPANY-FR200712002651

PATIENT
  Age: 75 Year
  Sex: Female

DRUGS (5)
  1. ZYPREXA [Suspect]
     Indication: BRIEF PSYCHOTIC DISORDER WITH MARKED STRESSORS
     Dosage: 20 MG, DAILY (1/D)
     Route: 048
     Dates: start: 20071101
  2. TRIMEPRAZINE TAB [Concomitant]
     Dosage: 10 GTT, DAILY (1/D)
     Route: 048
  3. QUITAXON [Concomitant]
     Indication: BRIEF PSYCHOTIC DISORDER WITH MARKED STRESSORS
     Dosage: UNK, UNK
     Route: 065
  4. HYTACAND [Concomitant]
     Indication: HYPERTENSION
     Dosage: UNK, UNK
     Route: 065
  5. KARDEGIC [Concomitant]
     Indication: HYPERLIPIDAEMIA
     Route: 065

REACTIONS (5)
  - BLOOD PRESSURE FLUCTUATION [None]
  - FALL [None]
  - HAEMATOMA [None]
  - HYPOTENSION [None]
  - TACHYCARDIA [None]
